FAERS Safety Report 22373165 (Version 3)
Quarter: 2023Q2

REPORT INFORMATION
  Report Type: Report from Study
  Country: KR (occurrence: None)
  Receive Date: 20230526
  Receipt Date: 20230619
  Transmission Date: 20230722
  Serious: Yes (Hospitalization)
  Sender: FDA-Public Use
  Company Number: KR-Eisai Medical Research-EC-2023-140894

PATIENT
  Age: 68 Year
  Sex: Male
  Weight: 72.1 kg

DRUGS (14)
  1. FYCOMPA [Suspect]
     Active Substance: PERAMPANEL
     Indication: Partial seizures with secondary generalisation
     Route: 048
     Dates: start: 20230329, end: 20230425
  2. FYCOMPA [Suspect]
     Active Substance: PERAMPANEL
     Route: 048
     Dates: start: 20230426, end: 20230517
  3. EDOXABAN TOSYLATE [Concomitant]
     Active Substance: EDOXABAN TOSYLATE
     Indication: Product used for unknown indication
     Dosage: FREQUENCY UNKNOWN
     Route: 048
     Dates: start: 20230525
  4. PROPAFENONE [Concomitant]
     Active Substance: PROPAFENONE
     Indication: Product used for unknown indication
     Route: 048
     Dates: start: 2019, end: 20230601
  5. REYON CLOPIDOGREL [Concomitant]
     Indication: Product used for unknown indication
     Route: 048
     Dates: start: 2019, end: 20230601
  6. IROSTA [Concomitant]
     Indication: Product used for unknown indication
     Route: 048
     Dates: start: 2013, end: 20230601
  7. BIPHEDINEDUO [Concomitant]
     Indication: Product used for unknown indication
     Route: 048
     Dates: start: 2013, end: 20230601
  8. FEXUCLUE [Concomitant]
     Indication: Product used for unknown indication
     Route: 048
     Dates: start: 2019, end: 20230601
  9. DAPAGLIFLOZIN [Concomitant]
     Active Substance: DAPAGLIFLOZIN
     Indication: Product used for unknown indication
     Route: 048
     Dates: start: 20230412
  10. MULEX [Concomitant]
     Indication: Product used for unknown indication
     Route: 048
     Dates: start: 20230510, end: 20230517
  11. ZALTRON [Concomitant]
     Indication: Product used for unknown indication
     Route: 048
     Dates: start: 20230510, end: 20230517
  12. ZALTRON [Concomitant]
     Route: 048
     Dates: start: 20230614
  13. DONGA GASTER [Concomitant]
     Indication: Product used for unknown indication
     Route: 048
     Dates: start: 20230510, end: 20230517
  14. DAIHAN ISOTONIC SODIUM CHLORIDE [Concomitant]
     Indication: Product used for unknown indication
     Dosage: DOSE-1 LITER BAG DP
     Route: 042
     Dates: start: 20230522, end: 20230526

REACTIONS (1)
  - Dizziness [Recovered/Resolved]

NARRATIVE: CASE EVENT DATE: 20230419
